FAERS Safety Report 8990502 (Version 2)
Quarter: 2013Q1

REPORT INFORMATION
  Report Type: Spontaneous
  Country: FR (occurrence: FR)
  Receive Date: 20121228
  Receipt Date: 20130125
  Transmission Date: 20140127
  Serious: Yes (Death)
  Sender: FDA-Public Use
  Company Number: FR-PFIZER INC-2012330456

PATIENT
  Age: 85 Year
  Sex: Male

DRUGS (7)
  1. TAHOR [Suspect]
     Indication: CORONARY ARTERY DISEASE
     Dosage: UNK
     Route: 048
     Dates: start: 20120812, end: 20120821
  2. CALCIPARIN [Suspect]
     Indication: ANTICOAGULANT THERAPY
     Dosage: UNK
     Route: 058
     Dates: start: 20120811, end: 20120822
  3. LASILIX [Suspect]
     Indication: CORONARY ARTERY DISEASE
     Dosage: UNK
     Route: 048
     Dates: start: 20120812, end: 20120823
  4. CARDENSIEL [Suspect]
     Indication: CORONARY ARTERY DISEASE
     Dosage: UNK
     Route: 048
     Dates: start: 20120812
  5. INEXIUM [Suspect]
     Dosage: UNK
     Route: 048
     Dates: start: 20120812, end: 20120825
  6. INSULATARD NPH HUMAN [Suspect]
     Dosage: UNK
     Route: 058
     Dates: start: 20120401
  7. KARDEGIC [Suspect]
     Dosage: UNK
     Route: 048
     Dates: start: 20120812, end: 20120822

REACTIONS (4)
  - Heparin-induced thrombocytopenia [Fatal]
  - Metastases to liver [Fatal]
  - Metastases to lung [Fatal]
  - Metastases to peritoneum [Fatal]
